FAERS Safety Report 5614566-7 (Version None)
Quarter: 2008Q1

REPORT INFORMATION
  Report Type: 
  Country: None (occurrence: None)
  Receive Date: 20080205
  Receipt Date: 20080110
  Transmission Date: 20080703
  Serious: No
  Sender: FDA-Public Use
  Company Number: US-BOEHRINGER INGELHEIM GMBH, GERMANY-2007-BP-25701BP

PATIENT
  Sex: Female
  Weight: 85 kg

DRUGS (15)
  1. SPIRIVA [Suspect]
     Indication: CHRONIC OBSTRUCTIVE PULMONARY DISEASE
     Route: 055
     Dates: start: 20070401
  2. OXYGEN [Concomitant]
     Indication: CHRONIC OBSTRUCTIVE PULMONARY DISEASE
  3. ALBUTEROL SULFATE [Concomitant]
     Indication: DYSPNOEA
  4. SYMBICORT [Concomitant]
  5. SINGULAIR [Concomitant]
  6. VYTORIN [Concomitant]
  7. NEXIUM [Concomitant]
  8. PREDNISONE TAB [Concomitant]
  9. HYZAAR [Concomitant]
  10. DILTIAZEM [Concomitant]
  11. LEVOTHROID [Concomitant]
  12. ARANESP [Concomitant]
     Route: 030
  13. NEBULIZER [Concomitant]
     Route: 055
  14. VITAMIN B SHOTS [Concomitant]
     Route: 030
  15. ADVAIR DISKUS 100/50 [Concomitant]

REACTIONS (2)
  - DRY MOUTH [None]
  - DYSPHONIA [None]
